FAERS Safety Report 22627077 (Version 1)
Quarter: 2023Q2

REPORT INFORMATION
  Report Type: Spontaneous
  Country: US (occurrence: US)
  Receive Date: 20230622
  Receipt Date: 20230622
  Transmission Date: 20230722
  Serious: No
  Sender: FDA-Public Use
  Company Number: US-JNJFOC-20230636245

PATIENT
  Age: 58 Year
  Sex: Female
  Weight: 59.02 kg

DRUGS (2)
  1. TREMFYA [Suspect]
     Active Substance: GUSELKUMAB
     Indication: Psoriasis
     Route: 065
     Dates: start: 2021
  2. TREMFYA [Suspect]
     Active Substance: GUSELKUMAB
     Indication: Psoriatic arthropathy

REACTIONS (9)
  - Psoriasis [Unknown]
  - Pain [Unknown]
  - Dry skin [Unknown]
  - Arthritis [Unknown]
  - Muscular weakness [Unknown]
  - Swelling [Unknown]
  - Therapeutic product effect decreased [Unknown]
  - Product use complaint [Unknown]
  - Wrong technique in product usage process [Unknown]

NARRATIVE: CASE EVENT DATE: 20230301
